FAERS Safety Report 4633226-2 (Version None)
Quarter: 2005Q2

REPORT INFORMATION
  Report Type: 
  Country: None (occurrence: None)
  Receive Date: 20050408
  Receipt Date: 20050329
  Transmission Date: 20051028
  Serious: Yes (Other)
  Sender: FDA-Public Use
  Company Number: 2005-03-2095

PATIENT
  Age: 42 Year
  Sex: Male
  Weight: 80 kg

DRUGS (2)
  1. INTERFERON ALFA-2B INJECTABLE (LIKE INTRON A) [Suspect]
     Indication: BLADDER CANCER
     Dosage: 10 MIU QWK INTRAVESICAL
     Route: 043
     Dates: start: 20040713
  2. BCG VACCINE INJECTABLE [Suspect]
     Indication: BLADDER CANCER
     Dosage: 27 MG QWK INTRAVESICAL
     Route: 043
     Dates: start: 20040713

REACTIONS (4)
  - HAEMATURIA [None]
  - THROMBOSIS [None]
  - URETHRAL OBSTRUCTION [None]
  - URINARY RETENTION [None]
